FAERS Safety Report 10359359 (Version 1)
Quarter: 2014Q3

REPORT INFORMATION
  Report Type: Spontaneous
  Country: US (occurrence: None)
  Receive Date: 20140801
  Receipt Date: 20140801
  Transmission Date: 20150326
  Serious: No
  Sender: FDA-Public Use
  Company Number: None

PATIENT
  Age: 33 Year
  Sex: Female
  Weight: 77.11 kg

DRUGS (1)
  1. NEXPLANON [Suspect]
     Active Substance: ETONOGESTREL
     Indication: CONTRACEPTION
     Dosage: INJECTED INTO LEFT ARM?
     Dates: start: 20140516

REACTIONS (3)
  - Mood swings [None]
  - Depression [None]
  - Post procedural haemorrhage [None]

NARRATIVE: CASE EVENT DATE: 20140516
